FAERS Safety Report 15793763 (Version 1)
Quarter: 2019Q1

REPORT INFORMATION
  Report Type: Report from Study
  Country: ES (occurrence: ES)
  Receive Date: 20190107
  Receipt Date: 20190107
  Transmission Date: 20190417
  Serious: Yes (Hospitalization)
  Sender: FDA-Public Use
  Company Number: ES-JNJFOC-20181223913

PATIENT
  Age: 46 Year
  Sex: Male
  Weight: 84.3 kg

DRUGS (10)
  1. VITAMINA B12 [Concomitant]
     Route: 065
     Dates: start: 20160718
  2. METAMIZOLE [Concomitant]
     Active Substance: METAMIZOLE
     Route: 065
     Dates: start: 20181026, end: 20181118
  3. USTEKINUMAB [Suspect]
     Active Substance: USTEKINUMAB
     Indication: CROHN^S DISEASE
     Route: 058
     Dates: start: 20180601
  4. USTEKINUMAB [Suspect]
     Active Substance: USTEKINUMAB
     Indication: CROHN^S DISEASE
     Route: 058
     Dates: start: 20180822
  5. METAMIZOLE [Concomitant]
     Active Substance: METAMIZOLE
     Route: 065
     Dates: start: 201610
  6. USTEKINUMAB [Suspect]
     Active Substance: USTEKINUMAB
     Indication: CROHN^S DISEASE
     Route: 058
     Dates: start: 20180307
  7. AZATHIOPRINE. [Concomitant]
     Active Substance: AZATHIOPRINE
     Route: 065
     Dates: start: 201610
  8. FOLIC ACID. [Concomitant]
     Active Substance: FOLIC ACID
     Route: 065
     Dates: start: 20160718
  9. DIACEPAN [Concomitant]
     Indication: SLEEP DISORDER THERAPY
     Route: 065
     Dates: start: 20170901
  10. USTEKINUMAB [Suspect]
     Active Substance: USTEKINUMAB
     Indication: CROHN^S DISEASE
     Dosage: MEDICATION KIT# FOR 390 MG WAS 10559, 10560, 10558
     Route: 058
     Dates: start: 20180110

REACTIONS (1)
  - Pelvic abscess [Recovered/Resolved]

NARRATIVE: CASE EVENT DATE: 20181214
